FAERS Safety Report 4488162-1 (Version None)
Quarter: 2004Q4

REPORT INFORMATION
  Report Type: 
  Country: None (occurrence: None)
  Receive Date: 20041028
  Receipt Date: 20041020
  Transmission Date: 20050328
  Serious: Yes (Death, Other)
  Sender: FDA-Public Use
  Company Number: JP-JNJFOC-20041004735

PATIENT
  Age: 20 Year
  Sex: Female

DRUGS (1)
  1. RISPERDAL [Suspect]
     Indication: SCHIZOPHRENIA
     Route: 049

REACTIONS (4)
  - BLOOD CREATINE PHOSPHOKINASE INCREASED [None]
  - CATATONIA [None]
  - NEUROLEPTIC MALIGNANT SYNDROME [None]
  - PYREXIA [None]
